FAERS Safety Report 11449948 (Version 1)
Quarter: 2015Q3

REPORT INFORMATION
  Report Type: Spontaneous
  Country: US (occurrence: US)
  Receive Date: 20150903
  Receipt Date: 20150903
  Transmission Date: 20151125
  Serious: No
  Sender: FDA-Public Use
  Company Number: US-ROCHE-1060771

PATIENT
  Sex: Female

DRUGS (5)
  1. PEGASYS [Suspect]
     Active Substance: PEGINTERFERON ALFA-2A
     Route: 065
  2. RIBAVIRIN (NON-ROCHE/NON-COMPARATOR) [Suspect]
     Active Substance: RIBAVIRIN
     Route: 048
  3. PEGASYS [Suspect]
     Active Substance: PEGINTERFERON ALFA-2A
     Indication: CHRONIC HEPATITIS C
     Route: 058
     Dates: start: 20120224
  4. TELAPREVIR [Suspect]
     Active Substance: TELAPREVIR
     Indication: CHRONIC HEPATITIS C
     Dosage: 2 TABS.
     Route: 065
     Dates: start: 20120224, end: 20120518
  5. RIBAVIRIN (NON-ROCHE/NON-COMPARATOR) [Suspect]
     Active Substance: RIBAVIRIN
     Indication: CHRONIC HEPATITIS C
     Route: 048

REACTIONS (7)
  - Anaemia [Unknown]
  - Syringe issue [Unknown]
  - Retinopathy [Unknown]
  - Product quality issue [Unknown]
  - Photophobia [Unknown]
  - Vision blurred [Recovering/Resolving]
  - Retinopathy [Recovering/Resolving]
